FAERS Safety Report 19224075 (Version 1)
Quarter: 2021Q2

REPORT INFORMATION
  Report Type: Spontaneous
  Country: US (occurrence: US)
  Receive Date: 20210505
  Receipt Date: 20210505
  Transmission Date: 20210717
  Serious: No
  Sender: FDA-Public Use
  Company Number: US-ROCHE-2574809

PATIENT
  Sex: Male

DRUGS (1)
  1. ESBRIET [Suspect]
     Active Substance: PIRFENIDONE
     Indication: IDIOPATHIC PULMONARY FIBROSIS
     Dosage: 2 TABLET BY MOUTH 3TIMES DAY
     Route: 048

REACTIONS (4)
  - Dyspnoea [Unknown]
  - Productive cough [Unknown]
  - Asthenia [Unknown]
  - Decreased appetite [Unknown]
